FAERS Safety Report 23761105 (Version 1)
Quarter: 2024Q2

REPORT INFORMATION
  Report Type: Report from Study
  Country: CA (occurrence: CA)
  Receive Date: 20240419
  Receipt Date: 20240419
  Transmission Date: 20240716
  Serious: Yes (Hospitalization, Other)
  Sender: FDA-Public Use
  Company Number: CA-JNJFOC-20210237321

PATIENT
  Age: 65 Year
  Sex: Female
  Weight: 54 kg

DRUGS (2)
  1. REMICADE [Suspect]
     Active Substance: INFLIXIMAB
     Indication: Crohn^s disease
     Dosage: EXPIRY DATE- 28-FEB-2025
     Route: 041
  2. REMICADE [Suspect]
     Active Substance: INFLIXIMAB
     Route: 041

REACTIONS (11)
  - Spondylolisthesis [Unknown]
  - Lumbar radiculopathy [Unknown]
  - Intervertebral disc protrusion [Unknown]
  - Foot deformity [Recovering/Resolving]
  - Osteoarthritis [Unknown]
  - Abdominal distension [Not Recovered/Not Resolved]
  - Hypoaesthesia [Unknown]
  - Peripheral coldness [Unknown]
  - Neuralgia [Unknown]
  - Constipation [Not Recovered/Not Resolved]
  - Off label use [Unknown]

NARRATIVE: CASE EVENT DATE: 20201224
